FAERS Safety Report 18012969 (Version 48)
Quarter: 2025Q2

REPORT INFORMATION
  Report Type: Report from Study
  Country: US (occurrence: US)
  Receive Date: 20200713
  Receipt Date: 20250626
  Transmission Date: 20250717
  Serious: Yes (Hospitalization, Other)
  Sender: TAKEDA
  Company Number: US-SHIRE-US202022187

PATIENT
  Age: 68 Year
  Sex: Female
  Weight: 65 kg

DRUGS (64)
  1. .ALPHA.1-PROTEINASE INHIBITOR HUMAN [Suspect]
     Active Substance: .ALPHA.1-PROTEINASE INHIBITOR HUMAN
     Indication: Alpha-1 antitrypsin deficiency
     Dosage: 3788 MILLIGRAM, 1/WEEK
     Dates: start: 20130111
  2. .ALPHA.1-PROTEINASE INHIBITOR HUMAN [Suspect]
     Active Substance: .ALPHA.1-PROTEINASE INHIBITOR HUMAN
     Indication: Chronic obstructive pulmonary disease
     Dosage: 60 MILLIGRAM/KILOGRAM, 1/WEEK
     Dates: start: 20130114
  3. .ALPHA.1-PROTEINASE INHIBITOR HUMAN [Suspect]
     Active Substance: .ALPHA.1-PROTEINASE INHIBITOR HUMAN
     Dosage: 60 MILLIGRAM/KILOGRAM, 1/WEEK
     Dates: start: 20131114
  4. .ALPHA.1-PROTEINASE INHIBITOR HUMAN [Suspect]
     Active Substance: .ALPHA.1-PROTEINASE INHIBITOR HUMAN
     Dosage: 60 MILLIGRAM/KILOGRAM, 1/WEEK
     Dates: start: 20190722
  5. .ALPHA.1-PROTEINASE INHIBITOR HUMAN [Suspect]
     Active Substance: .ALPHA.1-PROTEINASE INHIBITOR HUMAN
     Dosage: UNK UNK, 1/WEEK
  6. .ALPHA.1-PROTEINASE INHIBITOR HUMAN [Suspect]
     Active Substance: .ALPHA.1-PROTEINASE INHIBITOR HUMAN
     Dosage: UNK UNK, 1/WEEK
  7. .ALPHA.1-PROTEINASE INHIBITOR HUMAN [Suspect]
     Active Substance: .ALPHA.1-PROTEINASE INHIBITOR HUMAN
     Dosage: 60 MILLIGRAM/KILOGRAM, 1/WEEK
  8. COVID-19 VACCINE NOS [Suspect]
     Active Substance: COVID-19 VACCINE
     Indication: COVID-19 immunisation
  9. COVID-19 VACCINE NOS [Suspect]
     Active Substance: COVID-19 VACCINE
  10. DIPHENHYDRAMINE HYDROCHLORIDE [Concomitant]
     Active Substance: DIPHENHYDRAMINE HYDROCHLORIDE
  11. HEPARIN [Concomitant]
     Active Substance: HEPARIN SODIUM
  12. ESOMEPRAZOLE MAGNESIUM [Concomitant]
     Active Substance: ESOMEPRAZOLE MAGNESIUM
  13. ONDANSETRON HYDROCHLORIDE [Concomitant]
     Active Substance: ONDANSETRON HYDROCHLORIDE
  14. IBUPROFEN [Concomitant]
     Active Substance: IBUPROFEN
  15. EFFEXOR [Concomitant]
     Active Substance: VENLAFAXINE HYDROCHLORIDE
  16. ALBUTEROL SULFATE [Concomitant]
     Active Substance: ALBUTEROL SULFATE
  17. HYDROCODONE BITARTRATE AND ACETAMINOPHEN [Concomitant]
     Active Substance: ACETAMINOPHEN\HYDROCODONE BITARTRATE
  18. DALIRESP [Concomitant]
     Active Substance: ROFLUMILAST
  19. PFIZER-BIONTECH COVID-19 VACCINE [Concomitant]
     Active Substance: TOZINAMERAN
  20. EPINEPHRINE [Concomitant]
     Active Substance: EPINEPHRINE
  21. SODIUM CHLORIDE [Concomitant]
     Active Substance: SODIUM CHLORIDE
  22. FLUTICASONE PROPIONATE [Concomitant]
     Active Substance: FLUTICASONE PROPIONATE
  23. METHOCARBAMOL [Concomitant]
     Active Substance: METHOCARBAMOL
  24. VITAMIN C [Concomitant]
     Active Substance: ASCORBIC ACID
  25. ROPINIROLE HYDROCHLORIDE [Concomitant]
     Active Substance: ROPINIROLE HYDROCHLORIDE
  26. OSELTAMIVIR PHOSPHATE [Concomitant]
     Active Substance: OSELTAMIVIR PHOSPHATE
  27. DOXYCYCLINE HYCLATE [Concomitant]
     Active Substance: DOXYCYCLINE HYCLATE
  28. BUPROPION HYDROCHLORIDE [Concomitant]
     Active Substance: BUPROPION HYDROCHLORIDE
  29. OMEPRAZOLE [Concomitant]
     Active Substance: OMEPRAZOLE
  30. BUTALBITAL, ACETAMINOPHEN, AND CAFFEINE [Concomitant]
     Active Substance: ACETAMINOPHEN\BUTALBITAL\CAFFEINE
  31. ACETAMINOPHEN [Concomitant]
     Active Substance: ACETAMINOPHEN
  32. ESZOPICLONE [Concomitant]
     Active Substance: ESZOPICLONE
  33. ANORO ELLIPTA [Concomitant]
     Active Substance: UMECLIDINIUM BROMIDE\VILANTEROL TRIFENATATE
  34. METHYLPREDNISOLONE [Concomitant]
     Active Substance: METHYLPREDNISOLONE
  35. ASPIRIN [Concomitant]
     Active Substance: ASPIRIN
  36. AMBIEN [Concomitant]
     Active Substance: ZOLPIDEM TARTRATE
  37. CRESTOR [Concomitant]
     Active Substance: ROSUVASTATIN CALCIUM
  38. CLARITIN [Concomitant]
     Active Substance: LORATADINE
  39. PREDNISONE [Concomitant]
     Active Substance: PREDNISONE
  40. CODEINE\PROMETHAZINE [Concomitant]
     Active Substance: CODEINE\PROMETHAZINE
  41. LIDOCAINE [Concomitant]
     Active Substance: LIDOCAINE
  42. ZANTAC [Concomitant]
     Active Substance: RANITIDINE HYDROCHLORIDE
  43. SERTRALINE HYDROCHLORIDE [Concomitant]
     Active Substance: SERTRALINE HYDROCHLORIDE
  44. SODIUM PROPIONATE [Concomitant]
     Active Substance: SODIUM PROPIONATE
  45. LORATADINE\PSEUDOEPHEDRINE SULFATE [Concomitant]
     Active Substance: LORATADINE\PSEUDOEPHEDRINE SULFATE
  46. PROAIR HFA [Concomitant]
     Active Substance: ALBUTEROL SULFATE
  47. WELLBUTRIN SR [Concomitant]
     Active Substance: BUPROPION HYDROCHLORIDE
  48. IPRATROPIUM BROMIDE [Concomitant]
     Active Substance: IPRATROPIUM BROMIDE
  49. GAVISCON [Concomitant]
     Active Substance: ALUMINUM HYDROXIDE\MAGNESIUM CARBONATE
  50. MECLIZINE HYDROCHLORIDE [Concomitant]
     Active Substance: MECLIZINE HYDROCHLORIDE
  51. OFLOXACIN [Concomitant]
     Active Substance: OFLOXACIN
  52. CIPRODEX [Concomitant]
     Active Substance: CIPROFLOXACIN HYDROCHLORIDE\DEXAMETHASONE
  53. GABAPENTIN [Concomitant]
     Active Substance: GABAPENTIN
  54. OSELTAMIVIR [Concomitant]
     Active Substance: OSELTAMIVIR
  55. DIPHENHYDRAMINE [Concomitant]
     Active Substance: DIPHENHYDRAMINE
  56. MECLIZINE [Concomitant]
     Active Substance: MECLIZINE HYDROCHLORIDE
  57. DELSYM [Concomitant]
     Active Substance: DEXTROMETHORPHAN
  58. INJECTAFER [Concomitant]
     Active Substance: FERRIC CARBOXYMALTOSE
  59. IVIZIA DRY EYE [Concomitant]
     Active Substance: POVIDONE
  60. LORAZEPAM [Concomitant]
     Active Substance: LORAZEPAM
  61. UBRELVY [Concomitant]
     Active Substance: UBROGEPANT
  62. CYANOCOBALAMIN [Concomitant]
     Active Substance: CYANOCOBALAMIN
  63. QULIPTA [Concomitant]
     Active Substance: ATOGEPANT
  64. DULOXETINE HYDROCHLORIDE [Concomitant]
     Active Substance: DULOXETINE HYDROCHLORIDE

REACTIONS (45)
  - Transient ischaemic attack [Unknown]
  - Respiratory tract infection [Unknown]
  - Cerebrovascular accident [Unknown]
  - Diverticulitis [Unknown]
  - Colitis [Unknown]
  - Retinal tear [Unknown]
  - Catheter site pain [Unknown]
  - Procedural pain [Unknown]
  - Productive cough [Unknown]
  - Paraesthesia oral [Recovered/Resolved]
  - Infusion related reaction [Unknown]
  - Bite [Unknown]
  - Costochondritis [Unknown]
  - Hypoaesthesia oral [Recovered/Resolved]
  - COVID-19 [Unknown]
  - Allergy to animal [Unknown]
  - Multiple allergies [Unknown]
  - Gastritis [Unknown]
  - Procedural nausea [Unknown]
  - Eye swelling [Unknown]
  - Allergy to chemicals [Unknown]
  - Arthralgia [Unknown]
  - Reflux laryngitis [Unknown]
  - Infusion site rash [Unknown]
  - Weight decreased [Unknown]
  - Seasonal allergy [Unknown]
  - Balance disorder [Unknown]
  - Fall [Unknown]
  - Visual impairment [Unknown]
  - Ocular discomfort [Unknown]
  - Skin infection [Unknown]
  - Animal scratch [Unknown]
  - Eye infection [Unknown]
  - Pallor [Unknown]
  - Hyperhidrosis [Unknown]
  - Migraine [Unknown]
  - Chest discomfort [Recovered/Resolved]
  - Chest pain [Recovered/Resolved]
  - Diarrhoea [Unknown]
  - Rhinorrhoea [Unknown]
  - Cough [Unknown]
  - Fatigue [Unknown]
  - Dizziness [Unknown]
  - Headache [Recovered/Resolved]
  - Nausea [Recovered/Resolved]

NARRATIVE: CASE EVENT DATE: 20210325
